FAERS Safety Report 7090393-1 (Version None)
Quarter: 2010Q4

REPORT INFORMATION
  Report Type: 
  Country: None (occurrence: None)
  Receive Date: 20101109
  Receipt Date: 20101105
  Transmission Date: 20110411
  Serious: Yes (Death, Other)
  Sender: FDA-Public Use
  Company Number: PHHY2010CA62201

PATIENT
  Sex: Male

DRUGS (2)
  1. EXJADE [Suspect]
     Indication: MYELODYSPLASTIC SYNDROME
     Dosage: 3 DF, QD
     Route: 048
     Dates: start: 20091001
  2. EXJADE [Suspect]
     Dosage: UNK

REACTIONS (2)
  - DEATH [None]
  - HAEMOGLOBIN DECREASED [None]
